FAERS Safety Report 6057895-8 (Version None)
Quarter: 2009Q1

REPORT INFORMATION
  Report Type: 
  Country: None (occurrence: None)
  Receive Date: 20090126
  Receipt Date: 20090115
  Transmission Date: 20090719
  Serious: Yes (Hospitalization)
  Sender: FDA-Public Use
  Company Number: CFX20090001

PATIENT
  Age: 78 Year
  Sex: Male

DRUGS (5)
  1. CIPROFLOXACIN [Suspect]
     Indication: WOUND INFECTION
     Dosage: 500 MG, ONCE DAILY, ORAL
     Route: 048
     Dates: start: 20080901
  2. ZESTORETIC [Concomitant]
  3. FLOMAX [Concomitant]
  4. ASPIRIN [Concomitant]
  5. VITAMIN [Concomitant]

REACTIONS (1)
  - GENITAL RASH [None]
